FAERS Safety Report 8321700-7 (Version None)
Quarter: 2012Q2

REPORT INFORMATION
  Report Type: 
  Country: None (occurrence: None)
  Receive Date: 20120430
  Receipt Date: 20120420
  Transmission Date: 20120825
  Serious: Yes (Hospitalization)
  Sender: FDA-Public Use
  Company Number: JP-EISAI INC-E7389-02322-SPO-JP

PATIENT
  Sex: Female

DRUGS (3)
  1. HALAVEN [Suspect]
     Dosage: UNKNOWN
     Route: 041
  2. HALAVEN [Suspect]
     Indication: BREAST CANCER RECURRENT
     Route: 041
     Dates: start: 20120329
  3. DECADRON [Concomitant]
     Indication: PROPHYLAXIS
     Dates: start: 20120329

REACTIONS (5)
  - LEUKOPENIA [None]
  - PYREXIA [None]
  - DYSGEUSIA [None]
  - STOMATITIS [None]
  - MALIGNANT PLEURAL EFFUSION [None]
